FAERS Safety Report 11122817 (Version 1)
Quarter: 2015Q2

REPORT INFORMATION
  Report Type: Spontaneous
  Country: US (occurrence: US)
  Receive Date: 20150519
  Receipt Date: 20150519
  Transmission Date: 20150821
  Serious: No
  Sender: FDA-Public Use
  Company Number: US-PFIZER INC-2015167973

PATIENT
  Age: 58 Year
  Sex: Male

DRUGS (1)
  1. CHANTIX [Suspect]
     Active Substance: VARENICLINE TARTRATE
     Dosage: 1 DF, ALTERNATE DAY
     Route: 048

REACTIONS (3)
  - Paranoia [Not Recovered/Not Resolved]
  - Amphetamines positive [Unknown]
  - Pain [Unknown]
